FAERS Safety Report 8436252-0 (Version None)
Quarter: 2012Q2

REPORT INFORMATION
  Report Type: 
  Country: None (occurrence: None)
  Receive Date: 20120614
  Receipt Date: 20120605
  Transmission Date: 20120825
  Serious: Yes (Other)
  Sender: FDA-Public Use
  Company Number: CA-JNJFOC-20120603031

PATIENT
  Sex: Female
  Weight: 72.2 kg

DRUGS (9)
  1. REMICADE [Suspect]
     Indication: RHEUMATOID ARTHRITIS
     Route: 042
     Dates: start: 20040101
  2. METHOTREXATE [Concomitant]
     Route: 065
  3. ZOCOR [Concomitant]
     Route: 065
  4. ALTACE [Concomitant]
     Route: 065
  5. OXAZEPAM [Concomitant]
     Route: 065
  6. HYDROCHLOROTHIAZIDE [Concomitant]
     Route: 065
  7. LEVOTHYROXINE SODIUM [Concomitant]
     Route: 065
  8. ASPIRIN [Concomitant]
     Route: 065
  9. LEUCOVORIN CALCIUM [Concomitant]
     Route: 065

REACTIONS (1)
  - CATARACT [None]
